FAERS Safety Report 8713224 (Version 2)
Quarter: 2015Q1

REPORT INFORMATION
  Report Type: Report from Study
  Country: US (occurrence: US)
  Receive Date: 20120829
  Receipt Date: 20150210
  Transmission Date: 20150721
  Serious: Yes (Other)
  Sender: FDA-Public Use
  Company Number: US-ROCHE-1095395

PATIENT
  Sex: Female

DRUGS (19)
  1. SINGULAIR [Concomitant]
     Active Substance: MONTELUKAST SODIUM
     Route: 065
  2. LAMICTAL [Concomitant]
     Active Substance: LAMOTRIGINE
     Route: 065
  3. HYDROCHLOROTHIAZIDE. [Concomitant]
     Active Substance: HYDROCHLOROTHIAZIDE
     Route: 065
  4. PREDNISONE. [Concomitant]
     Active Substance: PREDNISONE
  5. PROVENTIL [Concomitant]
     Active Substance: ALBUTEROL
  6. ADVAIR HFA [Concomitant]
     Active Substance: FLUTICASONE PROPIONATE\SALMETEROL XINAFOATE
  7. BIAXIN [Concomitant]
     Active Substance: CLARITHROMYCIN
     Route: 065
  8. XOLAIR [Suspect]
     Active Substance: OMALIZUMAB
     Route: 058
     Dates: start: 20090325
  9. VENTOLIN [Concomitant]
     Active Substance: ALBUTEROL SULFATE
     Dosage: 2 PUFFS EVERY 4-6 HOURS AS NEEDED UP TO FOUR TIMES
     Route: 065
  10. XOLAIR [Suspect]
     Active Substance: OMALIZUMAB
     Route: 058
     Dates: start: 20081126
  11. CITALOPRAM HYDROBROMIDE. [Concomitant]
     Active Substance: CITALOPRAM HYDROBROMIDE
     Dosage: 1/2 TAB QD
     Route: 065
  12. SYMBICORT [Concomitant]
     Active Substance: BUDESONIDE\FORMOTEROL FUMARATE DIHYDRATE
     Dosage: 2 PUFF TWICE A DAY
     Route: 065
  13. ALBUTEROL. [Concomitant]
     Active Substance: ALBUTEROL
  14. ALLERTEC [Concomitant]
     Route: 065
  15. ZOMIG [Concomitant]
     Active Substance: ZOLMITRIPTAN
     Dosage: 1-2 QD PRN
     Route: 065
  16. XOLAIR [Suspect]
     Active Substance: OMALIZUMAB
     Indication: ASTHMA
     Route: 058
     Dates: start: 20061012
  17. XOLAIR [Suspect]
     Active Substance: OMALIZUMAB
     Route: 058
     Dates: start: 20081030
  18. COMBIVENT [Concomitant]
     Active Substance: ALBUTEROL SULFATE\IPRATROPIUM BROMIDE
     Dosage: 2 INHALATIONS EVERY 4-6 HRS UP TO 4 TIMES DAILY
     Route: 065
  19. AVELOX (UNITED STATES) [Concomitant]
     Route: 065

REACTIONS (15)
  - Dyspnoea [Unknown]
  - Bronchitis [Unknown]
  - Sinusitis [Unknown]
  - Asthma [Unknown]
  - Oropharyngeal pain [Unknown]
  - Respiratory tract infection [Unknown]
  - Pyrexia [Unknown]
  - Sputum discoloured [Unknown]
  - Malaise [Unknown]
  - Cough [Unknown]
  - Peripheral swelling [Unknown]
  - Chest discomfort [Unknown]
  - Pneumonia [Unknown]
  - Nasal oedema [Unknown]
  - Emotional disorder [Unknown]
